FAERS Safety Report 10211675 (Version 1)
Quarter: 2014Q2

REPORT INFORMATION
  Report Type: Spontaneous
  Country: US (occurrence: US)
  Receive Date: 20140602
  Receipt Date: 20140602
  Transmission Date: 20141212
  Serious: Yes (Other)
  Sender: FDA-Public Use
  Company Number: US-PFIZER INC-2014148559

PATIENT
  Sex: 0

DRUGS (1)
  1. QUILLIVANT XR [Suspect]
     Dosage: UNK
     Route: 048

REACTIONS (2)
  - Off label use [Unknown]
  - Cytogenetic abnormality [Not Recovered/Not Resolved]
